FAERS Safety Report 20033237 (Version 1)
Quarter: 2021Q4

REPORT INFORMATION
  Report Type: Spontaneous
  Country: IT (occurrence: IT)
  Receive Date: 20211104
  Receipt Date: 20211104
  Transmission Date: 20220303
  Serious: Yes (Other)
  Sender: FDA-Public Use
  Company Number: None

PATIENT
  Age: 67 Year
  Sex: Male
  Weight: 70 kg

DRUGS (1)
  1. OXALIPLATIN [Suspect]
     Active Substance: OXALIPLATIN
     Indication: Pancreatic carcinoma
     Dosage: 140 MILLIGRAM
     Route: 042
     Dates: start: 20210322, end: 20210803

REACTIONS (7)
  - Pallor [Recovering/Resolving]
  - Hypotension [Recovering/Resolving]
  - Anal sphincter atony [Recovering/Resolving]
  - Shock [Recovering/Resolving]
  - Vomiting [Recovering/Resolving]
  - Dyspnoea [Recovering/Resolving]
  - Flushing [Recovering/Resolving]

NARRATIVE: CASE EVENT DATE: 20210803
